FAERS Safety Report 25928200 (Version 3)
Quarter: 2025Q4

REPORT INFORMATION
  Report Type: Report from Study
  Country: CN (occurrence: None)
  Receive Date: 20251016
  Receipt Date: 20251128
  Transmission Date: 20260118
  Serious: Yes (Hospitalization)
  Sender: JIANGSU HANSOH PHARMACEUTICAL GROUP CO., LTD.
  Company Number: CN-Hansoh-20252190019116

PATIENT
  Age: 64 Year
  Sex: Female
  Weight: 62 kg

DRUGS (5)
  1. PEMETREXED DISODIUM [Suspect]
     Active Substance: PEMETREXED DISODIUM
     Indication: Non-small cell lung cancer
     Dosage: TEST RESULT:81TEST UNIT:ABSENTTEST ASSESSMENT:DONEH
     Route: 041
     Dates: start: 20250403, end: 20250605
  2. CARBOPLATIN [Suspect]
     Active Substance: CARBOPLATIN
     Indication: Non-small cell lung cancer
     Dosage: 501.6 MG, Q3D
     Route: 041
     Dates: start: 20250403, end: 20250403
  3. CARBOPLATIN [Suspect]
     Active Substance: CARBOPLATIN
     Dosage: 360 MG, Q3D
     Route: 041
     Dates: start: 20250424, end: 20250424
  4. CARBOPLATIN [Suspect]
     Active Substance: CARBOPLATIN
     Dosage: 349 MG, Q3D
     Route: 041
     Dates: start: 20250515, end: 20250515
  5. CARBOPLATIN [Suspect]
     Active Substance: CARBOPLATIN
     Dosage: 320 MG, Q3D
     Route: 041
     Dates: start: 20250605, end: 20250605

REACTIONS (2)
  - Chest discomfort [Recovered/Resolved]
  - Abdominal distension [Recovered/Resolved]

NARRATIVE: CASE EVENT DATE: 20250607
